FAERS Safety Report 4873436-2 (Version None)
Quarter: 2005Q4

REPORT INFORMATION
  Report Type: 
  Country: None (occurrence: None)
  Receive Date: 20051201
  Receipt Date: 20050818
  Transmission Date: 20060501
  Serious: No
  Sender: FDA-Public Use
  Company Number: 2005PV001343

PATIENT
  Age: 58 Year
  Sex: Male
  Weight: 98.4306 kg

DRUGS (2)
  1. BYETTA [Suspect]
     Indication: DIABETES MELLITUS NON-INSULIN-DEPENDENT
     Dosage: 5 MCG;BID;SC
     Route: 058
     Dates: start: 20050813
  2. GLUCOPHAGE [Concomitant]

REACTIONS (1)
  - WEIGHT DECREASED [None]
